FAERS Safety Report 9909436 (Version 1)
Quarter: 2014Q1

REPORT INFORMATION
  Report Type: Spontaneous
  Country: US (occurrence: US)
  Receive Date: 20140219
  Receipt Date: 20140219
  Transmission Date: 20141002
  Serious: No
  Sender: FDA-Public Use
  Company Number: US-TEVA-463548USA

PATIENT
  Age: 35 Year
  Sex: Female
  Weight: 88.53 kg

DRUGS (2)
  1. PARAGARD 380A [Suspect]
     Indication: CONTRACEPTION
     Route: 015
     Dates: start: 20131108, end: 20131231
  2. PRENATAL VITAMINS [Concomitant]
     Indication: BREAST FEEDING

REACTIONS (1)
  - Device expulsion [Recovered/Resolved]
